FAERS Safety Report 5732066-0 (Version None)
Quarter: 2008Q2

REPORT INFORMATION
  Report Type: 
  Country: None (occurrence: None)
  Receive Date: 20080506
  Receipt Date: 20080422
  Transmission Date: 20081010
  Serious: Yes (Other)
  Sender: FDA-Public Use
  Company Number: B0518806A

PATIENT
  Age: 32 Year
  Sex: Male

DRUGS (7)
  1. ZIDOVUDINE [Suspect]
     Indication: ACQUIRED IMMUNODEFICIENCY SYNDROME
  2. LAMIVUDINE [Suspect]
     Indication: ACQUIRED IMMUNODEFICIENCY SYNDROME
  3. NEVIRAPINE [Suspect]
     Indication: ACQUIRED IMMUNODEFICIENCY SYNDROME
  4. RIFAMPICIN [Concomitant]
  5. ISONIAZID [Concomitant]
  6. PYRAZINAMIDE [Concomitant]
  7. AZITHROMYCIN [Concomitant]

REACTIONS (5)
  - BORDERLINE LEPROSY [None]
  - IMMUNE RECONSTITUTION SYNDROME [None]
  - NEURITIS [None]
  - PERONEAL NERVE PALSY [None]
  - TUBERCULOID LEPROSY [None]
